FAERS Safety Report 23501592 (Version 1)
Quarter: 2024Q1

REPORT INFORMATION
  Report Type: Spontaneous
  Country: FR (occurrence: None)
  Receive Date: 20240208
  Receipt Date: 20240208
  Transmission Date: 20240410
  Serious: Yes (Other)
  Sender: FDA-Public Use
  Company Number: 2024A025547

PATIENT
  Age: 74 Year
  Sex: Female

DRUGS (1)
  1. DAPAGLIFLOZIN [Suspect]
     Active Substance: DAPAGLIFLOZIN
     Indication: Familial dilated cardiomyopathy
     Route: 048

REACTIONS (2)
  - Acetonaemia [Recovered/Resolved]
  - Ketoacidosis [Recovered/Resolved]
